FAERS Safety Report 9701688 (Version 1)
Quarter: 2013Q4

REPORT INFORMATION
  Report Type: Spontaneous
  Country: US (occurrence: US)
  Receive Date: 20131119
  Receipt Date: 20131119
  Transmission Date: 20140711
  Serious: Yes (Life-Threatening, Hospitalization)
  Sender: FDA-Public Use
  Company Number: US-SAVIENT-2013S1000040

PATIENT
  Sex: Male

DRUGS (9)
  1. KRYSTEXXA [Suspect]
     Indication: GOUT
     Route: 042
     Dates: start: 201303, end: 201303
  2. KRYSTEXXA [Suspect]
     Route: 042
     Dates: start: 2013, end: 2013
  3. KRYSTEXXA [Suspect]
     Route: 042
     Dates: start: 2013, end: 2013
  4. KRYSTEXXA [Suspect]
     Route: 042
     Dates: start: 201302, end: 201302
  5. OXYCODONE/ACETAMINOPHEN [Concomitant]
     Indication: PAIN
     Route: 048
  6. COLCHICINE [Concomitant]
     Indication: GOUT
     Route: 048
  7. BENADRYL [Concomitant]
     Indication: ALLERGY PROPHYLAXIS
  8. PREDNISONE [Concomitant]
     Indication: ALLERGY PROPHYLAXIS
  9. SOLUMEDROL [Concomitant]
     Indication: ALLERGY PROPHYLAXIS
     Route: 042

REACTIONS (2)
  - Anaphylactic reaction [Recovered/Resolved]
  - Therapeutic response decreased [Unknown]
